FAERS Safety Report 8199228-7 (Version None)
Quarter: 2012Q1

REPORT INFORMATION
  Report Type: 
  Country: None (occurrence: None)
  Receive Date: 20120309
  Receipt Date: 20120227
  Transmission Date: 20120608
  Serious: Yes (Hospitalization)
  Sender: FDA-Public Use
  Company Number: BE-ELI_LILLY_AND_COMPANY-BE201202003738

PATIENT
  Age: 3 Year
  Sex: Female

DRUGS (1)
  1. ZYPREXA [Suspect]
     Dosage: UNK
     Dates: start: 20080301

REACTIONS (5)
  - SEDATION [None]
  - ACCIDENTAL DRUG INTAKE BY CHILD [None]
  - AGITATION [None]
  - ACCIDENTAL OVERDOSE [None]
  - MIOSIS [None]
